FAERS Safety Report 10733197 (Version 1)
Quarter: 2015Q1

REPORT INFORMATION
  Report Type: Spontaneous
  Country: ZA (occurrence: SA)
  Receive Date: 20150123
  Receipt Date: 20150123
  Transmission Date: 20150721
  Serious: Yes (Other)
  Sender: FDA-Public Use
  Company Number: ZA-CIPLA LTD.-2015SA00453

PATIENT

DRUGS (12)
  1. ETOPOSIDE. [Suspect]
     Active Substance: ETOPOSIDE
     Indication: BRAIN NEOPLASM
  2. METHOTREXATE [Suspect]
     Active Substance: METHOTREXATE
     Indication: BRAIN NEOPLASM
  3. ACYCLOVIR. [Concomitant]
     Active Substance: ACYCLOVIR
     Indication: BRAIN NEOPLASM
  4. CISPLATIN. [Suspect]
     Active Substance: CISPLATIN
     Indication: BRAIN NEOPLASM
  5. PIPERACILLIN/TAZOBACTAM [Concomitant]
     Active Substance: PIPERACILLIN SODIUM\TAZOBACTAM SODIUM
     Indication: BRAIN NEOPLASM
  6. URSODIOL. [Concomitant]
     Active Substance: URSODIOL
     Indication: BRAIN NEOPLASM
  7. VINCRISTINE [Suspect]
     Active Substance: VINCRISTINE
     Indication: BRAIN NEOPLASM
  8. THIOTEPA. [Suspect]
     Active Substance: THIOTEPA
     Indication: BRAIN NEOPLASM
     Dosage: 10 MG/KG ON DAYS 4 AND 3
  9. GRANULOCYTE-COLONY STIMULATING FACTOR [Concomitant]
     Active Substance: FILGRASTIM
     Indication: BRAIN NEOPLASM
     Dosage: STARTING AT DAY +1 UNTIL THE ANC }2000/ML FOR
  10. CARBOPLATIN. [Suspect]
     Active Substance: CARBOPLATIN
     Indication: BRAIN NEOPLASM
     Dosage: 17 MG/KG ON DAYS 4 AND 3
  11. FLUCONAZOLE. [Concomitant]
     Active Substance: FLUCONAZOLE
     Indication: BRAIN NEOPLASM
  12. CYCLOPHOSPHAMIDE. [Suspect]
     Active Substance: CYCLOPHOSPHAMIDE
     Indication: BRAIN NEOPLASM

REACTIONS (1)
  - Enterococcal infection [Unknown]
